FAERS Safety Report 5604324-1 (Version None)
Quarter: 2008Q1

REPORT INFORMATION
  Report Type: 
  Country: None (occurrence: None)
  Receive Date: 20080128
  Receipt Date: 20080118
  Transmission Date: 20080703
  Serious: Yes (Disabling)
  Sender: FDA-Public Use
  Company Number: B0492684A

PATIENT
  Age: 74 Year
  Sex: Female
  Weight: 76 kg

DRUGS (3)
  1. LAPATINIB [Suspect]
     Indication: BREAST CANCER
     Dosage: 1000MG PER DAY
     Route: 048
     Dates: start: 20070808, end: 20070911
  2. TRASTUZUMAB [Suspect]
     Indication: BREAST CANCER
     Route: 042
     Dates: start: 20070807, end: 20070828
  3. BISOPROLOL FUMARATE [Concomitant]
     Route: 048
     Dates: start: 20070416

REACTIONS (7)
  - ACNE [None]
  - CONJUNCTIVITIS [None]
  - ERYTHEMA [None]
  - INSOMNIA [None]
  - PRURITUS [None]
  - RASH MACULO-PAPULAR [None]
  - SKIN REACTION [None]
